FAERS Safety Report 8916867 (Version 1)
Quarter: 2012Q4

REPORT INFORMATION
  Report Type: 
  Country: US (occurrence: US)
  Receive Date: 20121120
  Receipt Date: 20121120
  Transmission Date: 20130627
  Serious: Yes (Other)
  Sender: FDA-Public Use
  Company Number: US-ROCHE-1157598

PATIENT

DRUGS (3)
  1. RIBAVIRIN [Suspect]
     Indication: RESPIRATORY TRACT INFECTION VIRAL
     Dosage: loading dose
     Route: 042
  2. RIBAVIRIN [Suspect]
     Dosage: for 4 days
     Route: 042
  3. RIBAVIRIN [Suspect]
     Dosage: 3 days
     Route: 042

REACTIONS (1)
  - Haemolytic anaemia [Recovered/Resolved]
